FAERS Safety Report 5912467-8 (Version None)
Quarter: 2008Q4

REPORT INFORMATION
  Report Type: 
  Country: None (occurrence: None)
  Receive Date: 20081008
  Receipt Date: 20080929
  Transmission Date: 20090506
  Serious: Yes (Other)
  Sender: FDA-Public Use
  Company Number: JP-AVENTIS-200813059JP

PATIENT
  Age: 53 Year
  Sex: Male

DRUGS (5)
  1. ALLEGRA [Suspect]
     Route: 048
     Dates: start: 20080628, end: 20080830
  2. LIPIDIL [Suspect]
     Route: 048
     Dates: start: 20080628, end: 20080830
  3. ASPIRIN [Concomitant]
     Route: 048
     Dates: start: 20080408
  4. HERBESSER R [Concomitant]
     Route: 048
     Dates: start: 20080408
  5. LANSOPRAZOLE [Concomitant]
     Route: 048
     Dates: start: 20080830

REACTIONS (3)
  - ANOREXIA [None]
  - HEPATIC FUNCTION ABNORMAL [None]
  - MALAISE [None]
